FAERS Safety Report 9460350 (Version 1)
Quarter: 2013Q3

REPORT INFORMATION
  Report Type: Report from Study
  Country: RU (occurrence: RU)
  Receive Date: 20130815
  Receipt Date: 20130815
  Transmission Date: 20140515
  Serious: Yes (Other)
  Sender: FDA-Public Use
  Company Number: RU-PFIZER INC-2013210192

PATIENT
  Age: 52 Year
  Sex: Female

DRUGS (1)
  1. SILDENAFIL CITRATE [Suspect]
     Indication: EXTREMITY NECROSIS
     Dosage: 25 MG, 1X/DAY

REACTIONS (2)
  - Cardiac failure congestive [Unknown]
  - Electrocardiogram abnormal [Unknown]
